FAERS Safety Report 17514262 (Version 2)
Quarter: 2020Q1

REPORT INFORMATION
  Report Type: Spontaneous
  Country: FR (occurrence: FR)
  Receive Date: 20200306
  Receipt Date: 20200311
  Transmission Date: 20200409
  Serious: Yes (Life-Threatening, Other)
  Sender: FDA-Public Use
  Company Number: FR-AUROBINDO-AUR-APL-2020-010796

PATIENT
  Age: 13 Year
  Sex: Male
  Weight: 73 kg

DRUGS (9)
  1. IFOSFAMIDE EG [Suspect]
     Active Substance: IFOSFAMIDE
     Indication: OSTEOSARCOMA
     Dosage: 5220 MILLIGRAM, ONCE A DAY
     Route: 042
     Dates: start: 20200101, end: 20200103
  2. PIPERACILLIN AND TAZOBACTAM [Suspect]
     Active Substance: PIPERACILLIN SODIUM\TAZOBACTAM SODIUM
     Indication: PRODUCT USED FOR UNKNOWN INDICATION
     Dosage: 3 DOSAGE FORM, ONCE A DAY
     Route: 042
     Dates: start: 20191227, end: 20200103
  3. ETOPOSIDE TEVA [Suspect]
     Active Substance: ETOPOSIDE
     Indication: OSTEOSARCOMA
     Dosage: 130 MILLIGRAM, ONCE A DAY
     Route: 042
     Dates: start: 20200101, end: 20200103
  4. FLAGYL [Suspect]
     Active Substance: METRONIDAZOLE\METRONIDAZOLE HYDROCHLORIDE
     Indication: PRODUCT USED FOR UNKNOWN INDICATION
     Dosage: 3 DOSAGE FORM, ONCE A DAY
     Route: 048
     Dates: start: 20191226, end: 20200103
  5. TIORFAN [Suspect]
     Active Substance: RACECADOTRIL
     Indication: PRODUCT USED FOR UNKNOWN INDICATION
     Dosage: 3 DOSAGE FORM, ONCE A DAY (90 MG, DAILY)
     Route: 048
     Dates: start: 20191226, end: 20200103
  6. PANTOPRAZOLE SODIUM. [Suspect]
     Active Substance: PANTOPRAZOLE SODIUM
     Indication: PRODUCT USED FOR UNKNOWN INDICATION
     Dosage: 40 MILLIGRAM, ONCE A DAY
     Route: 042
     Dates: start: 20191224, end: 20200103
  7. PARACETAMOL B BRAUN [Suspect]
     Active Substance: ACETAMINOPHEN
     Indication: ANALGESIC THERAPY
     Dosage: 4 GRAM, ONCE A DAY
     Route: 042
     Dates: start: 20191227, end: 20200103
  8. METHYLTHIONINIUM [Suspect]
     Active Substance: METHYLENE BLUE
     Indication: NERVOUS SYSTEM DISORDER PROPHYLAXIS
     Dosage: 4 DOSAGE FORM, ONCE A DAY
     Route: 042
     Dates: start: 20200101, end: 20200103
  9. UROMITEXAN [Suspect]
     Active Substance: MESNA
     Indication: RENAL DISORDER PROPHYLAXIS
     Dosage: 6370 MILLIGRAM, ONCE A DAY
     Route: 042
     Dates: start: 20200101, end: 20200103

REACTIONS (1)
  - Hepatitis [Recovered/Resolved]

NARRATIVE: CASE EVENT DATE: 20200103
